FAERS Safety Report 4518231-9 (Version None)
Quarter: 2004Q4

REPORT INFORMATION
  Report Type: 
  Country: None (occurrence: None)
  Receive Date: 20041130
  Receipt Date: 20041112
  Transmission Date: 20050328
  Serious: Yes (Hospitalization)
  Sender: FDA-Public Use
  Company Number: USA040978503

PATIENT
  Age: 53 Year
  Sex: Male
  Weight: 91 kg

DRUGS (2)
  1. CYMBALTA [Suspect]
     Indication: DEPRESSION
     Dosage: 60 MG/1 DAY
     Dates: start: 20040824, end: 20040827
  2. ZOLOFT [Concomitant]

REACTIONS (8)
  - ALCOHOL USE [None]
  - BIPOLAR DISORDER [None]
  - DELUSION [None]
  - DRUG ABUSER [None]
  - MANIA [None]
  - PARANOIA [None]
  - STRESS SYMPTOMS [None]
  - TREATMENT NONCOMPLIANCE [None]
